FAERS Safety Report 9147864 (Version 1)
Quarter: 2013Q1

REPORT INFORMATION
  Report Type: Report from Study
  Country: US (occurrence: US)
  Receive Date: 20130307
  Receipt Date: 20130307
  Transmission Date: 20140127
  Serious: Yes (Other)
  Sender: FDA-Public Use
  Company Number: US-CELGENEUS-163-21880-13024217

PATIENT
  Age: 45 Year
  Sex: Male

DRUGS (6)
  1. REVLIMID [Suspect]
     Indication: NON-HODGKIN^S LYMPHOMA
     Dosage: 20 MILLIGRAM
     Route: 048
     Dates: start: 20090417, end: 20090507
  2. RITUXAN [Suspect]
     Indication: NON-HODGKIN^S LYMPHOMA
     Dosage: 375 MILLIGRAM/SQ. METER
     Route: 048
     Dates: end: 20090407
  3. PLAVIX [Concomitant]
     Indication: THROMBOSIS
     Dosage: 75 MILLIGRAM
     Route: 048
     Dates: end: 20130213
  4. ASPIRIN [Concomitant]
     Indication: PRODUCT USED FOR UNKNOWN INDICATION
     Dosage: 325 MILLIGRAM
     Route: 048
     Dates: end: 20130213
  5. OMEPRAZOLE [Concomitant]
     Indication: GASTROOESOPHAGEAL REFLUX DISEASE
     Dosage: 325 MILLIGRAM
     Route: 048
     Dates: end: 20130213
  6. SIMCOR [Concomitant]
     Indication: THROMBOSIS
     Dosage: 500/20MG
     Route: 048
     Dates: end: 20130221

REACTIONS (1)
  - Adenocarcinoma gastric [Unknown]
